FAERS Safety Report 21844054 (Version 8)
Quarter: 2023Q4

REPORT INFORMATION
  Report Type: Spontaneous
  Country: US (occurrence: US)
  Receive Date: 20230110
  Receipt Date: 20231208
  Transmission Date: 20240109
  Serious: Yes (Other)
  Sender: FDA-Public Use
  Company Number: US-PFIZER INC-PV202300005085

PATIENT
  Age: 76 Year
  Sex: Female
  Weight: 69.388 kg

DRUGS (1)
  1. BOSULIF [Suspect]
     Active Substance: BOSUTINIB MONOHYDRATE
     Indication: Chronic myeloid leukaemia
     Dosage: 5 PILLS PER DAY WITH FOOD
     Route: 048

REACTIONS (1)
  - Thrombocytopenia [Unknown]
